FAERS Safety Report 5510827-0 (Version None)
Quarter: 2007Q4

REPORT INFORMATION
  Report Type: 
  Country: None (occurrence: None)
  Receive Date: 20071108
  Receipt Date: 20071030
  Transmission Date: 20080405
  Serious: Yes (Hospitalization)
  Sender: FDA-Public Use
  Company Number: US-MERCK-0706USA03728

PATIENT
  Age: 72 Year
  Sex: Male

DRUGS (2)
  1. FOSAMAX [Suspect]
     Indication: OSTEOPOROSIS
     Route: 048
     Dates: start: 20010212, end: 20060829
  2. FOSAMAX [Suspect]
     Route: 048
     Dates: start: 19990104, end: 20010101

REACTIONS (7)
  - DEHYDRATION [None]
  - DENTAL CARIES [None]
  - HYPOTENSION [None]
  - LOOSE TOOTH [None]
  - MASTICATION DISORDER [None]
  - PAIN IN JAW [None]
  - TOOTH LOSS [None]
